FAERS Safety Report 4788818-7 (Version None)
Quarter: 2005Q4

REPORT INFORMATION
  Report Type: 
  Country: None (occurrence: None)
  Receive Date: 20051005
  Receipt Date: 20050928
  Transmission Date: 20060501
  Serious: Yes (Other)
  Sender: FDA-Public Use
  Company Number: PHBS2005JP14332

PATIENT
  Age: 52 Year
  Sex: Male

DRUGS (2)
  1. CYCLOSPORINE [Suspect]
     Indication: NEPHROTIC SYNDROME
     Dosage: 120 MG/D
     Route: 065
  2. STEROIDS NOS [Concomitant]
     Indication: NEPHROTIC SYNDROME
     Dosage: 40 MG/D
     Route: 065

REACTIONS (2)
  - BLOOD CREATININE INCREASED [None]
  - GLOMERULONEPHRITIS MEMBRANOUS [None]
